FAERS Safety Report 13825849 (Version 1)
Quarter: 2017Q3

REPORT INFORMATION
  Report Type: Report from Study
  Country: KR (occurrence: KR)
  Receive Date: 20170802
  Receipt Date: 20170802
  Transmission Date: 20171127
  Serious: Yes (Hospitalization)
  Sender: FDA-Public Use
  Company Number: US-ASTRAZENECA-2015SF31660

PATIENT
  Age: 29139 Day
  Sex: Male
  Weight: 67 kg

DRUGS (4)
  1. ROFLUMILAST. [Suspect]
     Active Substance: ROFLUMILAST
     Indication: CHRONIC OBSTRUCTIVE PULMONARY DISEASE
     Route: 048
     Dates: start: 20140710, end: 20140717
  2. HARNAL [Concomitant]
     Active Substance: TAMSULOSIN HYDROCHLORIDE
     Indication: DYSURIA
     Route: 048
     Dates: start: 20130411, end: 20140808
  3. AVODART [Concomitant]
     Active Substance: DUTASTERIDE
     Indication: DYSURIA
     Route: 048
     Dates: start: 20131017
  4. SPIRIVA [Concomitant]
     Active Substance: TIOTROPIUM BROMIDE MONOHYDRATE
     Indication: CHRONIC OBSTRUCTIVE PULMONARY DISEASE
     Route: 055
     Dates: start: 20130411

REACTIONS (3)
  - Vomiting [Recovering/Resolving]
  - Dyspnoea [Recovering/Resolving]
  - Diarrhoea [Recovering/Resolving]

NARRATIVE: CASE EVENT DATE: 20140716
